FAERS Safety Report 7966513-0 (Version None)
Quarter: 2011Q4

REPORT INFORMATION
  Report Type: 
  Country: None (occurrence: None)
  Receive Date: 20111208
  Receipt Date: 20111205
  Transmission Date: 20120403
  Serious: Yes (Other)
  Sender: FDA-Public Use
  Company Number: DE-ROCHE-1018771

PATIENT
  Age: 20 Year
  Sex: Male

DRUGS (7)
  1. DOXORUBICIN HCL [Suspect]
     Indication: BURKITT'S LYMPHOMA
  2. DEXAMETHASONE [Suspect]
     Indication: BURKITT'S LYMPHOMA
  3. RITUXIMAB [Suspect]
     Indication: BURKITT'S LYMPHOMA
  4. VINCRISTINE [Suspect]
     Indication: BURKITT'S LYMPHOMA
  5. CYCLOPHOSPHAMIDE [Suspect]
     Indication: BURKITT'S LYMPHOMA
     Route: 042
  6. DEPOCYT [Suspect]
     Indication: BURKITT'S LYMPHOMA
  7. CYCLOPHOSPHAMIDE [Suspect]
     Dosage: 300 MG ABS. IN A1-A3

REACTIONS (6)
  - PNEUMOCYSTIS JIROVECI PNEUMONIA [None]
  - MUCOSAL INFLAMMATION [None]
  - APLASIA [None]
  - HYPERKALAEMIA [None]
  - HEPATIC ENZYME INCREASED [None]
  - HERPES SIMPLEX [None]
